FAERS Safety Report 7762142-2 (Version None)
Quarter: 2011Q3

REPORT INFORMATION
  Report Type: 
  Country: None (occurrence: None)
  Receive Date: 20110919
  Receipt Date: 20110919
  Transmission Date: 20111222
  Serious: Yes (Hospitalization)
  Sender: FDA-Public Use
  Company Number: None

PATIENT
  Sex: Male
  Weight: 94.5 kg

DRUGS (6)
  1. CYTARABINE [Suspect]
     Dosage: 2546 MG
  2. CYCLOPHOSPHAMIDE [Suspect]
     Dosage: 4270 MG
  3. METHOTREXATE [Concomitant]
     Dosage: 60 MG
  4. MERCAPTOPURINE [Suspect]
     Dosage: 3600 MG
  5. PEG-L-ASPARAGINASE (K-H) [Suspect]
     Dosage: 5450 IU
  6. VINCRISTINE SULFATE [Suspect]
     Dosage: 8 MG

REACTIONS (7)
  - PSYCHOTIC DISORDER [None]
  - CONFUSIONAL STATE [None]
  - DYSARTHRIA [None]
  - EMBOLIC CEREBRAL INFARCTION [None]
  - MENTAL STATUS CHANGES [None]
  - SOMNOLENCE [None]
  - AMMONIA INCREASED [None]
